FAERS Safety Report 7605322-9 (Version None)
Quarter: 2011Q3

REPORT INFORMATION
  Report Type: 
  Country: None (occurrence: None)
  Receive Date: 20110712
  Receipt Date: 20110712
  Transmission Date: 20111222
  Serious: Yes (Hospitalization)
  Sender: FDA-Public Use
  Company Number: None

PATIENT
  Age: 71 Year
  Sex: Male
  Weight: 124.5 kg

DRUGS (2)
  1. ASPIRIN [Suspect]
     Indication: CARDIOVASCULAR EVENT PROPHYLAXIS
     Dosage: 325 MG EVERY DAY PO
     Route: 048
     Dates: end: 20110526
  2. FISH OIL [Suspect]
     Indication: LIPIDS ABNORMAL
     Dosage: 1 GM QID PO
     Route: 048
     Dates: end: 20110526

REACTIONS (1)
  - GASTRIC HAEMORRHAGE [None]
